FAERS Safety Report 23055677 (Version 3)
Quarter: 2025Q3

REPORT INFORMATION
  Report Type: Report from Study
  Country: GB (occurrence: GB)
  Receive Date: 20231011
  Receipt Date: 20250812
  Transmission Date: 20251021
  Serious: Yes (Hospitalization)
  Sender: SANDOZ
  Company Number: GB-SANDOZ-SDZ2023GB006986

PATIENT
  Sex: Female

DRUGS (1)
  1. OMNITROPE [Suspect]
     Active Substance: SOMATROPIN
     Indication: Turner^s syndrome
     Dosage: 1.2 MG, QD
     Route: 058
     Dates: start: 20230627

REACTIONS (4)
  - Ankle fracture [Unknown]
  - Product storage error [Unknown]
  - Drug dose omission by device [Unknown]
  - Product dispensing error [Unknown]
